FAERS Safety Report 24212016 (Version 1)
Quarter: 2024Q3

REPORT INFORMATION
  Report Type: Other
  Country: BR (occurrence: None)
  Receive Date: 20240814
  Receipt Date: 20240814
  Transmission Date: 20241016
  Serious: Yes (Death, Hospitalization)
  Sender: BIONPHARMA
  Company Number: BR-Bion-013672

PATIENT
  Age: 36 Year
  Sex: Male

DRUGS (4)
  1. AMANTADINE HYDROCHLORIDE [Suspect]
     Active Substance: AMANTADINE HYDROCHLORIDE
     Indication: Rabies
     Route: 048
  2. ASCORBIC ACID [Concomitant]
     Active Substance: ASCORBIC ACID
     Indication: Rabies
     Dosage: 1 G/DAY
     Route: 042
  3. MIDAZOLAM [Concomitant]
     Active Substance: MIDAZOLAM
     Indication: Rabies
  4. KETAMINE [Concomitant]
     Active Substance: KETAMINE
     Indication: Rabies

REACTIONS (1)
  - Drug ineffective for unapproved indication [Fatal]
